FAERS Safety Report 10784775 (Version 1)
Quarter: 2015Q1

REPORT INFORMATION
  Report Type: Spontaneous
  Country: US (occurrence: US)
  Receive Date: 20150211
  Receipt Date: 20150211
  Transmission Date: 20150721
  Serious: No
  Sender: FDA-Public Use
  Company Number: US-GLAXOSMITHKLINE-A1084715A

PATIENT

DRUGS (1)
  1. LAMICTAL [Suspect]
     Active Substance: LAMOTRIGINE
     Indication: JUVENILE MYOCLONIC EPILEPSY
     Route: 048
     Dates: start: 201402

REACTIONS (5)
  - Head injury [Not Recovered/Not Resolved]
  - Scintillating scotoma [Unknown]
  - Vitreous floaters [Unknown]
  - Photopsia [Unknown]
  - Vision blurred [Unknown]
